FAERS Safety Report 21498796 (Version 1)
Quarter: 2022Q4

REPORT INFORMATION
  Report Type: Spontaneous
  Country: US (occurrence: None)
  Receive Date: 20221024
  Receipt Date: 20221024
  Transmission Date: 20230112
  Serious: No
  Sender: FDA-Public Use
  Company Number: 2022A332144

PATIENT
  Age: 25501 Day
  Sex: Female
  Weight: 84.4 kg

DRUGS (1)
  1. SYMBICORT [Suspect]
     Active Substance: BUDESONIDE\FORMOTEROL FUMARATE DIHYDRATE
     Indication: Asthma
     Dosage: 160/4.5MCG, VIA INHALATION, 2 PUFFS 2 TIMES A DAY
     Route: 055

REACTIONS (6)
  - Sleep apnoea syndrome [Unknown]
  - Asthma [Not Recovered/Not Resolved]
  - Incorrect dose administered by device [Unknown]
  - Wrong technique in device usage process [Unknown]
  - Off label use of device [Unknown]
  - Device use issue [Unknown]

NARRATIVE: CASE EVENT DATE: 20220927
